FAERS Safety Report 20901373 (Version 2)
Quarter: 2022Q2

REPORT INFORMATION
  Report Type: Report from Study
  Country: US (occurrence: US)
  Receive Date: 20220601
  Receipt Date: 20220615
  Transmission Date: 20220721
  Serious: No
  Sender: FDA-Public Use
  Company Number: US-NOVARTISTESTPH-NVSC2022US125986

PATIENT
  Sex: Male

DRUGS (1)
  1. ENTRESTO [Suspect]
     Active Substance: SACUBITRIL\VALSARTAN
     Indication: Hypotension
     Dosage: 1 DOSAGE FORM, BID
     Route: 048
     Dates: start: 20220526

REACTIONS (2)
  - Blood pressure systolic decreased [Unknown]
  - Product use in unapproved indication [Unknown]
